FAERS Safety Report 25813100 (Version 1)
Quarter: 2025Q3

REPORT INFORMATION
  Report Type: Spontaneous
  Country: US (occurrence: US)
  Receive Date: 20250917
  Receipt Date: 20250917
  Transmission Date: 20251020
  Serious: No
  Sender: TEVA
  Company Number: US-TEVA-VS-3371144

PATIENT
  Age: 60 Year
  Sex: Female

DRUGS (1)
  1. ALPRAZOLAM [Suspect]
     Active Substance: ALPRAZOLAM
     Indication: Anxiety
     Route: 048

REACTIONS (7)
  - Reading disorder [Unknown]
  - Inappropriate schedule of product administration [Unknown]
  - Nervous system disorder [Unknown]
  - Scar [Unknown]
  - Nervousness [Unknown]
  - Illness [Unknown]
  - Food allergy [Unknown]
